FAERS Safety Report 9611758 (Version 1)
Quarter: 2013Q4

REPORT INFORMATION
  Report Type: Spontaneous
  Country: US (occurrence: US)
  Receive Date: 20131010
  Receipt Date: 20131010
  Transmission Date: 20140711
  Serious: No
  Sender: FDA-Public Use
  Company Number: US-PFIZER INC-2013291115

PATIENT
  Sex: Female

DRUGS (1)
  1. CHANTIX [Suspect]
     Dosage: UNK
     Route: 048

REACTIONS (6)
  - Feeling abnormal [Unknown]
  - Headache [Unknown]
  - Sleep disorder [Unknown]
  - Nausea [Unknown]
  - Fatigue [Unknown]
  - Hypoaesthesia [Unknown]
